FAERS Safety Report 9132359 (Version 5)
Quarter: 2013Q2

REPORT INFORMATION
  Report Type: Spontaneous
  Country: GB (occurrence: GB)
  Receive Date: 20130301
  Receipt Date: 20130621
  Transmission Date: 20140414
  Serious: Yes (Other)
  Sender: FDA-Public Use
  Company Number: GB-VERTEX PHARMACEUTICALS INC.-2013-002883

PATIENT
  Sex: Male

DRUGS (3)
  1. INCIVO [Suspect]
     Indication: HEPATITIS C
     Dosage: WEEK 9
     Route: 048
     Dates: start: 20121004, end: 20121206
  2. INTRON A [Suspect]
     Indication: HEPATITIS C
     Dosage: DOSAGE FORM: INJECTION
  3. RIBAVIRIN [Suspect]
     Indication: HEPATITIS C
     Dosage: DOSAGE FORM: TABLET, IN DIVIDED DOSES
     Route: 048

REACTIONS (2)
  - Optic nerve sheath haemorrhage [Unknown]
  - Rash [Unknown]
